FAERS Safety Report 6431397-9 (Version None)
Quarter: 2009Q4

REPORT INFORMATION
  Report Type: 
  Country: None (occurrence: None)
  Receive Date: 20091106
  Receipt Date: 20091030
  Transmission Date: 20100525
  Serious: Yes (Hospitalization)
  Sender: FDA-Public Use
  Company Number: PHHO2009BE13413

PATIENT
  Sex: Male
  Weight: 47.6 kg

DRUGS (2)
  1. RAD 666 RAD+TAB [Suspect]
     Indication: LIVER TRANSPLANT
  2. TACROLIMUS COMP-TAC+ [Suspect]
     Indication: LIVER TRANSPLANT

REACTIONS (2)
  - CONVULSION [None]
  - EPILEPSY [None]
